FAERS Safety Report 8556223-3 (Version None)
Quarter: 2012Q3

REPORT INFORMATION
  Report Type: 
  Country: None (occurrence: None)
  Receive Date: 20120801
  Receipt Date: 20120724
  Transmission Date: 20120928
  Serious: Yes (Other)
  Sender: FDA-Public Use
  Company Number: US-US-EMD SERONO, INC.-7048714

PATIENT
  Sex: Female

DRUGS (4)
  1. REBIF [Suspect]
     Indication: MULTIPLE SCLEROSIS
     Route: 058
     Dates: start: 20100301
  2. NAPROXEN (ALEVE) [Suspect]
  3. NAPROXEN (ALEVE) [Suspect]
     Indication: PREMEDICATION
  4. EIGHT HOUR TYLENOL [Concomitant]
     Indication: PREMEDICATION

REACTIONS (6)
  - MALAISE [None]
  - INJECTION SITE ERYTHEMA [None]
  - INJECTION SITE PAIN [None]
  - GASTROINTESTINAL HAEMORRHAGE [None]
  - FATIGUE [None]
  - HEADACHE [None]
